FAERS Safety Report 21647641 (Version 1)
Quarter: 2022Q4

REPORT INFORMATION
  Report Type: Spontaneous
  Country: GB (occurrence: GB)
  Receive Date: 20221128
  Receipt Date: 20221128
  Transmission Date: 20230113
  Serious: Yes (Other)
  Sender: FDA-Public Use
  Company Number: None

PATIENT
  Age: 67 Year
  Sex: Male
  Weight: 92 kg

DRUGS (7)
  1. OZEMPIC [Suspect]
     Active Substance: SEMAGLUTIDE
     Indication: Product used for unknown indication
     Dosage: 0.25 MG, QW
     Route: 058
     Dates: start: 20220905, end: 20221012
  2. ASPIRIN [Concomitant]
     Active Substance: ASPIRIN
     Dosage: 1 TAB QD
     Dates: start: 20210903
  3. ATORVASTATIN [Concomitant]
     Active Substance: ATORVASTATIN
     Dosage: 1 TAB QD
     Dates: start: 20210903
  4. LANSOPRAZOLE [Concomitant]
     Active Substance: LANSOPRAZOLE
     Dosage: 1 TAB QD
     Dates: start: 20210903
  5. METFORMIN [Concomitant]
     Active Substance: METFORMIN HYDROCHLORIDE
     Dosage: 1 TAB QD (AFTER EVENING MEAL)
     Dates: start: 20221104
  6. RAMIPRIL [Concomitant]
     Active Substance: RAMIPRIL
     Dosage: 1 TAB QD
     Dates: start: 20210903
  7. SILDENAFIL [Concomitant]
     Active Substance: SILDENAFIL
     Dosage: 1 TAB (AS ADVISED)
     Dates: start: 20210903

REACTIONS (1)
  - Gastrointestinal disorder [Recovered/Resolved]
